FAERS Safety Report 7283238-8 (Version None)
Quarter: 2011Q1

REPORT INFORMATION
  Report Type: 
  Country: None (occurrence: None)
  Receive Date: 20110209
  Receipt Date: 20110202
  Transmission Date: 20110831
  Serious: Yes (Other)
  Sender: FDA-Public Use
  Company Number: JP-B.I. PHARMACEUTICALS,INC./RIDGEFIELD-2011-BP-01987NB

PATIENT
  Sex: Male

DRUGS (4)
  1. CALBLOCK [Concomitant]
     Route: 048
  2. ZYLORIC [Concomitant]
     Indication: HYPERURICAEMIA
     Route: 048
  3. MICARDIS [Suspect]
     Indication: HYPERTENSION
     Dosage: 40 MG
     Route: 048
  4. URINORM [Concomitant]
     Indication: HYPERURICAEMIA
     Route: 048

REACTIONS (1)
  - NEPHROSCLEROSIS [None]
